FAERS Safety Report 18554649 (Version 2)
Quarter: 2020Q4

REPORT INFORMATION
  Report Type: Spontaneous
  Country: DE (occurrence: DE)
  Receive Date: 20201127
  Receipt Date: 20201217
  Transmission Date: 20210114
  Serious: Yes (Death, Congenital Anomaly)
  Sender: FDA-Public Use
  Company Number: DE-TEVA-2020-DE-1852624

PATIENT
  Sex: Female
  Weight: .15 kg

DRUGS (3)
  1. GILENYA [Suspect]
     Active Substance: FINGOLIMOD HYDROCHLORIDE
     Indication: MULTIPLE SCLEROSIS
     Dosage: .5 MILLIGRAM DAILY;
     Route: 064
     Dates: start: 20190819, end: 20191221
  2. RAMIPRIL. [Suspect]
     Active Substance: RAMIPRIL
     Indication: HYPERTENSION
     Dosage: 5 MILLIGRAM DAILY;
     Route: 064
     Dates: start: 20190819, end: 20191221
  3. L-THYROXIN 150 [Concomitant]
     Indication: AUTOIMMUNE THYROIDITIS
     Dosage: 150 MICROGRAM DAILY;
     Route: 064
     Dates: start: 20190819, end: 20191221

REACTIONS (5)
  - Hypoplastic left heart syndrome [Fatal]
  - Aortic valve stenosis [Not Recovered/Not Resolved]
  - Foetal exposure during pregnancy [Unknown]
  - Mitral valve atresia [Not Recovered/Not Resolved]
  - Bicuspid aortic valve [Not Recovered/Not Resolved]
